FAERS Safety Report 13193267 (Version 3)
Quarter: 2017Q1

REPORT INFORMATION
  Report Type: Report from Study
  Country: BR (occurrence: BR)
  Receive Date: 20170207
  Receipt Date: 20170322
  Transmission Date: 20170428
  Serious: Yes (Hospitalization)
  Sender: FDA-Public Use
  Company Number: BR-PFIZER INC-2016522925

PATIENT
  Age: 76 Year
  Sex: Male
  Weight: 59.5 kg

DRUGS (13)
  1. BLINDED BEVACIZUMAB [Suspect]
     Active Substance: BEVACIZUMAB
     Indication: NON-SMALL CELL LUNG CANCER
     Dosage: 915 MG, EVERY 21 DAYS
     Route: 042
     Dates: start: 20160920
  2. BLINDED BEVACIZUMAB [Suspect]
     Active Substance: BEVACIZUMAB
     Indication: NON-SMALL CELL LUNG CANCER
     Dosage: 915 MG, EVERY 21 DAYS
     Route: 042
     Dates: start: 20160920
  3. NYSTATIN. [Concomitant]
     Active Substance: NYSTATIN
     Indication: ORAL CANDIDIASIS
  4. CODEINE [Concomitant]
     Active Substance: CODEINE
     Indication: CHEST PAIN
     Dosage: UNK
     Dates: start: 20161022, end: 20161025
  5. CARBOPLATIN. [Suspect]
     Active Substance: CARBOPLATIN
     Indication: NON-SMALL CELL LUNG CANCER
     Dosage: 332 MG, EVERY 21 DAYS
     Route: 042
     Dates: start: 20160920
  6. PACLITAXEL. [Suspect]
     Active Substance: PACLITAXEL
     Indication: NON-SMALL CELL LUNG CANCER
     Dosage: 252 MG, EVERY 21 DAYS
     Route: 042
     Dates: start: 20160920
  7. MORPHINE [Concomitant]
     Active Substance: MORPHINE
     Indication: ANALGESIC THERAPY
     Dosage: UNK
     Dates: start: 20161025, end: 20161223
  8. BLINDED PF-06439535 [Suspect]
     Active Substance: INVESTIGATIONAL PRODUCT
     Indication: NON-SMALL CELL LUNG CANCER
     Dosage: 915 MG, EVERY 21 DAYS
     Route: 042
     Dates: start: 20160920
  9. BLINDED PF-06439535 [Suspect]
     Active Substance: INVESTIGATIONAL PRODUCT
     Indication: NON-SMALL CELL LUNG CANCER
     Dosage: 915 MG, EVERY 21 DAYS
     Route: 042
     Dates: start: 20160920
  10. CAPTOPRIL. [Concomitant]
     Active Substance: CAPTOPRIL
     Indication: HYPERTENSION
     Dosage: UNK
     Dates: start: 20161010, end: 20161223
  11. RINOSORO [Concomitant]
     Indication: NASAL DISORDER
     Dosage: UNK
     Dates: start: 20161025, end: 20161223
  12. BROMOPRIDE [Concomitant]
     Active Substance: BROMOPRIDE
     Indication: SECRETION DISCHARGE
     Dosage: UNK
     Dates: start: 20161025, end: 20161223
  13. NYSTATIN. [Concomitant]
     Active Substance: NYSTATIN
     Indication: DYSPHAGIA
     Dosage: UNK
     Dates: start: 20161022, end: 20161223

REACTIONS (1)
  - Pneumonia [Recovered/Resolved]

NARRATIVE: CASE EVENT DATE: 20161104
